FAERS Safety Report 9099626 (Version 1)
Quarter: 2013Q1

REPORT INFORMATION
  Report Type: Spontaneous
  Country: US (occurrence: US)
  Receive Date: 20130214
  Receipt Date: 20130214
  Transmission Date: 20140127
  Serious: No
  Sender: FDA-Public Use
  Company Number: US-ASTRAZENECA-2013SE08704

PATIENT
  Age: 57 Year
  Sex: Male

DRUGS (2)
  1. SYMBICORT PMDI [Suspect]
     Indication: CHRONIC OBSTRUCTIVE PULMONARY DISEASE
     Route: 055
  2. SYMBICORT PMDI [Suspect]
     Indication: LUNG DISORDER
     Route: 055

REACTIONS (2)
  - Hypertension [Unknown]
  - Neuropathy peripheral [Unknown]
